FAERS Safety Report 13770045 (Version 1)
Quarter: 2017Q3

REPORT INFORMATION
  Report Type: Spontaneous
  Country: US (occurrence: US)
  Receive Date: 20170719
  Receipt Date: 20170719
  Transmission Date: 20171127
  Serious: No
  Sender: FDA-Public Use
  Company Number: None

PATIENT
  Age: 43 Year
  Sex: Male

DRUGS (1)
  1. COPAXONE [Suspect]
     Active Substance: GLATIRAMER ACETATE
     Route: 058
     Dates: start: 20170419

REACTIONS (6)
  - Back pain [None]
  - Chills [None]
  - Musculoskeletal pain [None]
  - Dyspnoea [None]
  - Heart rate increased [None]
  - Immediate post-injection reaction [None]

NARRATIVE: CASE EVENT DATE: 20170710
